FAERS Safety Report 7817513-2 (Version None)
Quarter: 2011Q4

REPORT INFORMATION
  Report Type: 
  Country: None (occurrence: None)
  Receive Date: 20111017
  Receipt Date: 20110915
  Transmission Date: 20120403
  Serious: Yes (Other)
  Sender: FDA-Public Use
  Company Number: AR-ROCHE-GNE324794

PATIENT
  Sex: Female

DRUGS (1)
  1. LUCENTIS [Suspect]
     Indication: MACULOPATHY
     Dosage: DOSE FORM: AMPOULE
     Route: 050
     Dates: start: 20110801

REACTIONS (3)
  - ROAD TRAFFIC ACCIDENT [None]
  - RIB FRACTURE [None]
  - CLAVICLE FRACTURE [None]
